FAERS Safety Report 7880489-6 (Version None)
Quarter: 2011Q4

REPORT INFORMATION
  Report Type: 
  Country: None (occurrence: None)
  Receive Date: 20111101
  Receipt Date: 20111026
  Transmission Date: 20120403
  Serious: Yes (Other)
  Sender: FDA-Public Use
  Company Number: US-AMGEN-USASP2011055569

PATIENT
  Age: 67 Year
  Sex: Female

DRUGS (1)
  1. ENBREL [Suspect]
     Indication: RHEUMATOID ARTHRITIS
     Dosage: 25 MG, 2 TIMES/WK
     Dates: start: 20040501, end: 20110701

REACTIONS (8)
  - NEUROPATHY PERIPHERAL [None]
  - WEIGHT DECREASED [None]
  - IMPAIRED HEALING [None]
  - FATIGUE [None]
  - LOCALISED INFECTION [None]
  - ARTHRALGIA [None]
  - WOUND [None]
  - HYPOTENSION [None]
